FAERS Safety Report 5802139-2 (Version None)
Quarter: 2008Q3

REPORT INFORMATION
  Report Type: 
  Country: None (occurrence: None)
  Receive Date: 20080707
  Receipt Date: 20080625
  Transmission Date: 20090109
  Serious: Yes (Death, Life-Threatening, Hospitalization)
  Sender: FDA-Public Use
  Company Number: US-ROCHE-567255

PATIENT
  Sex: Male
  Weight: 83.9 kg

DRUGS (19)
  1. PEGASYS [Suspect]
     Dosage: DOSGE FORM - PREFILLED SYRINGE
     Route: 058
     Dates: start: 20080207, end: 20080509
  2. RO 4588161 (HCV POLYMERASE INHIBITOR) [Suspect]
     Route: 048
     Dates: start: 20080207, end: 20080513
  3. RIBAVIRIN [Suspect]
     Dosage: DOSING FREQUENCY REPORTED AS QD, FORM PILL
     Route: 048
     Dates: start: 20080207, end: 20080528
  4. METHOTREXATE [Suspect]
     Indication: DIFFUSE LARGE B-CELL LYMPHOMA
     Route: 065
     Dates: start: 20080611, end: 20080611
  5. CYTOXAN [Suspect]
     Indication: DIFFUSE LARGE B-CELL LYMPHOMA
     Route: 065
     Dates: start: 20080611, end: 20080615
  6. VINCRISTINE [Suspect]
     Indication: DIFFUSE LARGE B-CELL LYMPHOMA
     Route: 065
     Dates: start: 20080616, end: 20080616
  7. ADRIAMYCIN PFS [Suspect]
     Indication: DIFFUSE LARGE B-CELL LYMPHOMA
     Route: 065
     Dates: start: 20080616, end: 20080616
  8. REMERON [Concomitant]
     Dates: start: 19900101
  9. IBUPROFEN [Concomitant]
     Dates: start: 20080229
  10. MYLANTA [Concomitant]
     Dates: start: 20080331
  11. STEROID NOS [Concomitant]
     Dosage: NAME REPORTED : STEROID EPIDURAL
     Dates: start: 20071221, end: 20071221
  12. STEROID NOS [Concomitant]
     Dates: start: 20080103, end: 20080103
  13. KLONOPIN [Concomitant]
     Dates: start: 20080304
  14. VIGAMOX [Concomitant]
     Dates: start: 20080415
  15. TRAMADOL HCL [Concomitant]
     Dates: start: 20080428
  16. IRON SUPPLEMENT [Concomitant]
     Dates: start: 20080428
  17. LIDOCAINE [Concomitant]
     Dates: start: 20080428
  18. VICODIN [Concomitant]
     Dates: start: 20080501
  19. POLYETHYLENE GLYCOL [Concomitant]
     Dates: start: 20080428

REACTIONS (2)
  - CARDIAC ARREST [None]
  - LYMPHOMA [None]
